FAERS Safety Report 8377874-5 (Version None)
Quarter: 2012Q2

REPORT INFORMATION
  Report Type: 
  Country: None (occurrence: None)
  Receive Date: 20120522
  Receipt Date: 20120518
  Transmission Date: 20120825
  Serious: Yes (Other)
  Sender: FDA-Public Use
  Company Number: JP-PFIZER INC-2012079968

PATIENT
  Age: 58 Year
  Sex: Male
  Weight: 93 kg

DRUGS (6)
  1. LITHIUM CARBONATE [Concomitant]
     Indication: BIPOLAR II DISORDER
     Dosage: 200 MG, 3X/DAY
     Route: 048
     Dates: start: 20111112, end: 20111208
  2. DOGMATYL [Concomitant]
     Indication: BIPOLAR II DISORDER
     Dosage: 50 MG, 2X/DAY
     Route: 048
     Dates: start: 20120114, end: 20120209
  3. LITHIUM CARBONATE [Concomitant]
     Dosage: 400 MG, 2X/DAY
     Route: 048
     Dates: start: 20111209
  4. DOGMATYL [Concomitant]
     Dosage: 50 MG, 3X/DAY
     Route: 048
     Dates: start: 20120323
  5. ZOLOFT [Suspect]
     Indication: DEPRESSION
     Dosage: 50 MG, 2X/DAY
     Route: 048
     Dates: start: 20120309, end: 20120314
  6. ZOLOFT [Suspect]
     Indication: BIPOLAR II DISORDER
     Dosage: 25 MG, 2X/DAY
     Route: 048
     Dates: start: 20120224, end: 20120308

REACTIONS (4)
  - SKIN EXFOLIATION [None]
  - ECZEMA [None]
  - PRURITUS [None]
  - ERYTHEMA [None]
